FAERS Safety Report 6657782-8 (Version None)
Quarter: 2010Q1

REPORT INFORMATION
  Report Type: 
  Country: None (occurrence: None)
  Receive Date: 20100330
  Receipt Date: 20100325
  Transmission Date: 20100710
  Serious: Yes (Other)
  Sender: FDA-Public Use
  Company Number: AU-ROCHE-684504

PATIENT
  Sex: Male
  Weight: 100 kg

DRUGS (5)
  1. ACTEMRA [Suspect]
     Indication: RHEUMATOID ARTHRITIS
     Dosage: FORM INFUSION
     Route: 042
     Dates: start: 20091120
  2. ACTEMRA [Suspect]
     Route: 042
     Dates: start: 20091222
  3. ACTEMRA [Suspect]
     Route: 042
     Dates: start: 20100118, end: 20100118
  4. METHOTREXATE [Concomitant]
     Route: 042
     Dates: end: 20100125
  5. PREDNISOLONE [Concomitant]
     Route: 042

REACTIONS (2)
  - HEPATITIS [None]
  - LIVER FUNCTION TEST ABNORMAL [None]
